FAERS Safety Report 4740720-2 (Version None)
Quarter: 2005Q3

REPORT INFORMATION
  Report Type: 
  Country: None (occurrence: None)
  Receive Date: 20050801
  Receipt Date: 20050630
  Transmission Date: 20060218
  Serious: No
  Sender: FDA-Public Use
  Company Number: 2005PV000193

PATIENT
  Age: 64 Year
  Sex: Female
  Weight: 165.5629 kg

DRUGS (4)
  1. BYETTA [Suspect]
     Indication: DIABETES MELLITUS NON-INSULIN-DEPENDENT
     Dosage: 5 UG; BID; SC
     Route: 058
     Dates: start: 20050611
  2. METFORMIN HCL [Concomitant]
  3. THYROID TAB [Concomitant]
  4. COZAAR [Concomitant]

REACTIONS (2)
  - INJECTION SITE HAEMORRHAGE [None]
  - WEIGHT DECREASED [None]
